FAERS Safety Report 20643358 (Version 3)
Quarter: 2022Q3

REPORT INFORMATION
  Report Type: Spontaneous
  Country: JP (occurrence: JP)
  Receive Date: 20220328
  Receipt Date: 20220725
  Transmission Date: 20221027
  Serious: Yes (Death)
  Sender: FDA-Public Use
  Company Number: JP-Eisai-202113473_LEN_P_1

PATIENT
  Age: 78 Year
  Sex: Female

DRUGS (2)
  1. LENVIMA [Suspect]
     Active Substance: LENVATINIB
     Indication: Thyroid cancer
     Route: 048
     Dates: start: 20170425, end: 2017
  2. LENVIMA [Suspect]
     Active Substance: LENVATINIB
     Dosage: 5 DAYS ON/2 DAYS OFF SCHEDULE
     Route: 048
     Dates: start: 2017, end: 20170607

REACTIONS (1)
  - Cardiac failure [Fatal]

NARRATIVE: CASE EVENT DATE: 20191011
